FAERS Safety Report 8025884-X (Version None)
Quarter: 2012Q1

REPORT INFORMATION
  Report Type: 
  Country: None (occurrence: None)
  Receive Date: 20120105
  Receipt Date: 20111223
  Transmission Date: 20120608
  Serious: Yes (Death)
  Sender: FDA-Public Use
  Company Number: CH-ROCHE-1010159

PATIENT
  Sex: Female

DRUGS (24)
  1. BISOPROLOL FUMARATE [Concomitant]
     Dates: start: 20110909
  2. FUROSEMIDE [Concomitant]
     Indication: CARDIAC FAILURE
  3. DIGOXIN [Suspect]
     Indication: CARDIAC FAILURE
     Route: 048
     Dates: start: 20110810
  4. QUETIAPINE FUMARATE [Suspect]
     Indication: PRODUCT USED FOR UNKNOWN INDICATION
     Dosage: 5 MG IN EVENING
     Route: 048
     Dates: end: 20110831
  5. POTASSIUM CHLORIDE [Suspect]
     Indication: HYPOKALAEMIA
     Route: 048
  6. KONAKION [Concomitant]
     Route: 048
     Dates: start: 20110902, end: 20110909
  7. DIGOXIN [Suspect]
     Route: 048
     Dates: start: 20110905
  8. NOVALGIN [Concomitant]
     Route: 048
     Dates: start: 20110909, end: 20110909
  9. KONAKION [Concomitant]
     Dates: start: 20110910, end: 20110910
  10. HALDOL [Concomitant]
     Route: 048
     Dates: start: 20110906, end: 20110909
  11. LIDOCAINE HCL [Concomitant]
     Indication: ANAL HAEMORRHAGE
     Dates: start: 20110901, end: 20110909
  12. TORSEMIDE [Suspect]
     Indication: CARDIAC FAILURE
     Route: 048
     Dates: start: 20110809
  13. MARCUMAR [Suspect]
     Indication: ATRIAL FIBRILLATION
     Route: 048
     Dates: start: 20110501, end: 20110902
  14. PREDNISONE TAB [Suspect]
     Indication: CHRONIC OBSTRUCTIVE PULMONARY DISEASE
     Route: 048
  15. PREDNISONE TAB [Suspect]
     Route: 048
     Dates: start: 20110906, end: 20110909
  16. SEROQUEL [Suspect]
     Indication: PRODUCT USED FOR UNKNOWN INDICATION
     Dosage: WITH INCREASING DOSE TO 35 MG DAILY
     Route: 048
     Dates: start: 20110831
  17. POTASSIUM BICARBONATE [Suspect]
     Indication: HYPOKALAEMIA
     Route: 048
     Dates: end: 20110809
  18. PARAGOL [Concomitant]
     Indication: CONSTIPATION
     Route: 048
     Dates: start: 20110829, end: 20110909
  19. DIGOXIN [Suspect]
     Route: 048
     Dates: start: 20110909, end: 20110909
  20. SEROQUEL [Suspect]
     Route: 048
     Dates: end: 20110906
  21. JANUVIA [Concomitant]
     Dates: start: 20110601, end: 20110909
  22. ACETAMINOPHEN [Concomitant]
     Route: 048
     Dates: start: 20110801
  23. ACETAMINOPHEN [Concomitant]
     Route: 048
     Dates: start: 20110902, end: 20110908
  24. RAMIPRIL [Concomitant]
     Dates: end: 20110810

REACTIONS (6)
  - GASTROINTESTINAL HAEMORRHAGE [None]
  - MELAENA [None]
  - INTERNATIONAL NORMALISED RATIO INCREASED [None]
  - HAEMORRHAGIC ANAEMIA [None]
  - THROMBOCYTOPENIA [None]
  - GASTRIC ULCER [None]
